FAERS Safety Report 25721263 (Version 1)
Quarter: 2025Q3

REPORT INFORMATION
  Report Type: Spontaneous
  Country: EU (occurrence: EU)
  Receive Date: 20250825
  Receipt Date: 20250825
  Transmission Date: 20251020
  Serious: Yes (Hospitalization, Other)
  Sender: CIPLA
  Company Number: EU-LRB-01079859

PATIENT

DRUGS (3)
  1. ALBUTEROL\IPRATROPIUM [Suspect]
     Active Substance: ALBUTEROL\IPRATROPIUM
     Indication: Asthma
     Dates: start: 20250807
  2. PREDNISONE [Concomitant]
     Active Substance: PREDNISONE
     Indication: Product used for unknown indication
     Route: 065
  3. MAGNESIUMSULFAAT [Concomitant]
     Indication: Product used for unknown indication
     Route: 042

REACTIONS (3)
  - Hypokalaemia [Recovering/Resolving]
  - Lactic acidosis [Recovering/Resolving]
  - Hyperglycaemia [Recovering/Resolving]
